FAERS Safety Report 8000231-8 (Version None)
Quarter: 2011Q4

REPORT INFORMATION
  Report Type: 
  Country: None (occurrence: None)
  Receive Date: 20111123
  Receipt Date: 20111006
  Transmission Date: 20120403
  Serious: Yes (Other)
  Sender: FDA-Public Use
  Company Number: 336717

PATIENT
  Age: 52 Year
  Sex: Male
  Weight: 93.9 kg

DRUGS (4)
  1. VICTOZA [Suspect]
     Dosage: 1.2 MG, QD
     Dates: end: 20110930
  2. VICTOZA [Suspect]
     Indication: TYPE 2 DIABETES MELLITUS
     Dosage: , QD, SUBCUTANEOUS
     Route: 058
     Dates: start: 20110601
  3. ACTOS [Concomitant]
  4. METFORMIN HCL [Concomitant]

REACTIONS (2)
  - PANCREATITIS [None]
  - DEHYDRATION [None]
